FAERS Safety Report 5991006-X (Version None)
Quarter: 2008Q4

REPORT INFORMATION
  Report Type: 
  Country: None (occurrence: None)
  Receive Date: 20081211
  Receipt Date: 20081209
  Transmission Date: 20090506
  Serious: Yes (Hospitalization, Other)
  Sender: FDA-Public Use
  Company Number: US-MERCK-0811USA03551

PATIENT
  Age: 54 Year
  Sex: Male
  Weight: 95 kg

DRUGS (5)
  1. JANUVIA [Suspect]
     Route: 048
  2. METFORMIN [Concomitant]
     Route: 065
  3. AVANDIA [Concomitant]
     Route: 065
  4. GLIPIZIDE [Concomitant]
     Route: 065
  5. DIOVAN [Concomitant]
     Route: 065

REACTIONS (1)
  - PANCREATITIS [None]
